FAERS Safety Report 8970236 (Version 1)
Quarter: 2012Q4

REPORT INFORMATION
  Report Type: 
  Country: US (occurrence: US)
  Receive Date: 20121218
  Receipt Date: 20121218
  Transmission Date: 20130627
  Serious: Yes (Other)
  Sender: FDA-Public Use
  Company Number: US-BRISTOL-MYERS SQUIBB COMPANY-16488256

PATIENT
  Age: 42 Year
  Sex: Female

DRUGS (14)
  1. ABILIFY TABS 10 MG [Suspect]
     Indication: DEPRESSION
     Dates: start: 20110811
  2. BUSPIRONE [Concomitant]
  3. AMITRIPTYLINE [Concomitant]
  4. SEROQUEL [Concomitant]
  5. LORAZEPAM [Concomitant]
  6. OXYCONTIN [Concomitant]
  7. LEVOTHYROXINE [Concomitant]
  8. FLUOXETINE [Concomitant]
  9. REVATIO [Concomitant]
  10. FUROSEMIDE [Concomitant]
  11. ALPRAZOLAM [Concomitant]
  12. AMPHETAMINE SULFATE [Concomitant]
  13. GABAPENTIN [Concomitant]
  14. OXYCODONE [Concomitant]

REACTIONS (1)
  - Diabetes mellitus [Unknown]
